FAERS Safety Report 12947315 (Version 1)
Quarter: 2016Q4

REPORT INFORMATION
  Report Type: Report from Study
  Country: DE (occurrence: DE)
  Receive Date: 20161116
  Receipt Date: 20161116
  Transmission Date: 20170207
  Serious: Yes (Hospitalization, Other)
  Sender: FDA-Public Use
  Company Number: DE-BIOGEN-2016BI00316129

PATIENT
  Sex: Female

DRUGS (4)
  1. ESTREVA (ESTRADIOL) GEL [Concomitant]
     Indication: OESTROGEN DEFICIENCY
     Route: 065
     Dates: start: 201209
  2. ESTROGEN [Concomitant]
     Active Substance: ESTRONE\SUS SCROFA OVARY
     Indication: OESTROGEN DEFICIENCY
     Dosage: TAKEN ON EVERY THIRD DAY
     Route: 065
     Dates: start: 2016
  3. AVONEX [Suspect]
     Active Substance: INTERFERON BETA-1A
     Indication: MULTIPLE SCLEROSIS
     Route: 030
     Dates: start: 20021209
  4. L-THYROXIN [Concomitant]
     Active Substance: LEVOTHYROXINE SODIUM
     Indication: PRODUCT USED FOR UNKNOWN INDICATION
     Dosage: 100
     Route: 065
     Dates: start: 1980

REACTIONS (4)
  - Cystitis [Recovered/Resolved]
  - Sepsis [Recovered/Resolved]
  - Pelvic cyst [Recovered/Resolved]
  - Pelvic fluid collection [Recovered/Resolved]

NARRATIVE: CASE EVENT DATE: 2012
